FAERS Safety Report 11288476 (Version 1)
Quarter: 2015Q3

REPORT INFORMATION
  Report Type: Spontaneous
  Country: BR (occurrence: BR)
  Receive Date: 20150721
  Receipt Date: 20150721
  Transmission Date: 20151125
  Serious: Yes (Other)
  Sender: FDA-Public Use
  Company Number: BR-PFIZER INC-2015237822

PATIENT
  Age: 67 Year
  Sex: Male
  Weight: 85 kg

DRUGS (2)
  1. LYRICA [Suspect]
     Active Substance: PREGABALIN
     Indication: MUSCLE RELAXANT THERAPY
     Dosage: 75 MG, 2X/DAY (EVERY 12 HOURS)
     Route: 048
     Dates: start: 2014, end: 201502
  2. TRAMADOL. [Concomitant]
     Active Substance: TRAMADOL
     Indication: PAIN
     Dosage: 1 DF, 4X/DAY (EVERY 6 HOURS)
     Dates: start: 2013

REACTIONS (6)
  - Abasia [Unknown]
  - Spinal pain [Not Recovered/Not Resolved]
  - Pain in extremity [Unknown]
  - Spinal disorder [Unknown]
  - Bedridden [Not Recovered/Not Resolved]
  - Joint injury [Unknown]
